FAERS Safety Report 8507267-9 (Version None)
Quarter: 2012Q3

REPORT INFORMATION
  Report Type: 
  Country: None (occurrence: None)
  Receive Date: 20120712
  Receipt Date: 20120703
  Transmission Date: 20120928
  Serious: Yes (Life-Threatening, Hospitalization)
  Sender: FDA-Public Use
  Company Number: CA-FRI-1000037012

PATIENT
  Sex: Male

DRUGS (1)
  1. ESCITALOPRAM [Suspect]

REACTIONS (7)
  - PSYCHOTIC DISORDER [None]
  - DELUSIONAL DISORDER, PERSECUTORY TYPE [None]
  - MENTAL DISORDER [None]
  - CONTUSION [None]
  - SKIN INJURY [None]
  - BLOOD SODIUM DECREASED [None]
  - PELVIC FRACTURE [None]
